FAERS Safety Report 17797479 (Version 1)
Quarter: 2020Q2

REPORT INFORMATION
  Report Type: Spontaneous
  Country: US (occurrence: US)
  Receive Date: 20200516
  Receipt Date: 20200516
  Transmission Date: 20200714
  Serious: Yes (Hospitalization)
  Sender: FDA-Public Use
  Company Number: None

PATIENT
  Sex: Female
  Weight: 68.94 kg

DRUGS (1)
  1. MK-3475 (PEMBROLIZUMAB) [Suspect]
     Active Substance: PEMBROLIZUMAB

REACTIONS (6)
  - Electrocardiogram ST-T segment abnormal [None]
  - Acute myocardial infarction [None]
  - Sinus tachycardia [None]
  - Chest discomfort [None]
  - Troponin increased [None]
  - Coronary artery stenosis [None]

NARRATIVE: CASE EVENT DATE: 20200103
